FAERS Safety Report 7857950-3 (Version None)
Quarter: 2011Q4

REPORT INFORMATION
  Report Type: 
  Country: None (occurrence: None)
  Receive Date: 20111027
  Receipt Date: 20111014
  Transmission Date: 20120403
  Serious: Yes (Life-Threatening, Hospitalization)
  Sender: FDA-Public Use
  Company Number: US-BAYER-2010-003328

PATIENT
  Age: 19 Year
  Sex: Female
  Weight: 102.4 kg

DRUGS (12)
  1. NEXIUM [Concomitant]
     Indication: GASTROOESOPHAGEAL REFLUX DISEASE
     Dosage: 40 MG, UNK
     Dates: start: 20070601, end: 20080701
  2. PHENTERMINE [Concomitant]
     Indication: WEIGHT INCREASED
     Dosage: 15 MG, UNK
     Route: 048
     Dates: start: 20080401
  3. TRAMADOL HCL [Concomitant]
     Dosage: UNK UNK, PRN
     Route: 048
  4. HYDROCODONE BITARTRATE AND ACETAMINOPHEN [Concomitant]
     Dosage: 50 MG, PRN
  5. YAZ [Suspect]
     Indication: CONTRACEPTION
     Dosage: UNK
     Dates: start: 20071001, end: 20080801
  6. ALPRAZOLAM [Concomitant]
     Indication: ANXIETY
     Dosage: UNK UNK, PRN
     Route: 048
     Dates: start: 20070401, end: 20070701
  7. AMOXICILLIN [Concomitant]
     Indication: SINUSITIS
     Dosage: 500 MG, UNK
     Route: 048
  8. CYMBALTA [Concomitant]
     Dosage: 60 MG, QD
     Route: 048
  9. AZITHROMYCIN [Concomitant]
     Dosage: 500 MG, UNK
  10. ALPRAZOLAM [Concomitant]
     Dosage: UNK, PRN
     Dates: start: 20080101, end: 20080901
  11. VITAMIN B-12 [Concomitant]
     Indication: FATIGUE
     Dosage: 1000 MG, UNK
     Route: 030
  12. YAZ [Suspect]
     Indication: ACNE

REACTIONS (5)
  - CHOLECYSTITIS CHRONIC [None]
  - ANXIETY [None]
  - GALLBLADDER DISORDER [None]
  - PAIN [None]
  - FEAR [None]
